FAERS Safety Report 21290119 (Version 1)
Quarter: 2022Q3

REPORT INFORMATION
  Report Type: Spontaneous
  Country: None (occurrence: FR)
  Receive Date: 20220902
  Receipt Date: 20220902
  Transmission Date: 20221026
  Serious: Yes (Other)
  Sender: FDA-Public Use
  Company Number: FR-B.Braun Medical Inc.-2132524

PATIENT
  Age: 41 Year
  Sex: Female

DRUGS (7)
  1. CEFAZOLIN [Suspect]
     Active Substance: CEFAZOLIN
  2. NOREPINEPHRINE [Suspect]
     Active Substance: NOREPINEPHRINE
  3. REMIFENTANIL HYDROCHLORIDE [Suspect]
     Active Substance: REMIFENTANIL HYDROCHLORIDE
  4. KETOPROFEN [Suspect]
     Active Substance: KETOPROFEN
  5. KETOPROFEN [Concomitant]
     Active Substance: KETOPROFEN
  6. TAMOXIFEN [Concomitant]
     Active Substance: TAMOXIFEN
  7. ENANTONE LP [Concomitant]
     Active Substance: LEUPROLIDE ACETATE

REACTIONS (2)
  - Cholestasis [Not Recovered/Not Resolved]
  - Hepatic cytolysis [Not Recovered/Not Resolved]
